FAERS Safety Report 8298457-1 (Version None)
Quarter: 2012Q2

REPORT INFORMATION
  Report Type: 
  Country: None (occurrence: None)
  Receive Date: 20120419
  Receipt Date: 20120405
  Transmission Date: 20120825
  Serious: Yes (Hospitalization)
  Sender: FDA-Public Use
  Company Number: JP-MYLANLABS-2012S1007367

PATIENT
  Age: 13 Year
  Sex: Male
  Weight: 75 kg

DRUGS (4)
  1. VALPROIC ACID [Concomitant]
     Indication: EPILEPSY
     Dosage: 600 MG/DAY
     Route: 065
  2. LAMOTRGINE [Suspect]
     Dosage: 45 MG/DAY
     Route: 065
  3. LAMOTRGINE [Suspect]
     Indication: EPILEPSY
     Dosage: 5MG/DAY
     Route: 065
  4. VALPROIC ACID [Concomitant]
     Dosage: 500 MG/DAY
     Route: 065

REACTIONS (1)
  - INAPPROPRIATE ANTIDIURETIC HORMONE SECRETION [None]
